FAERS Safety Report 12839460 (Version 1)
Quarter: 2016Q4

REPORT INFORMATION
  Report Type: Spontaneous
  Country: US (occurrence: US)
  Receive Date: 20161012
  Receipt Date: 20161012
  Transmission Date: 20170207
  Serious: No
  Sender: FDA-Public Use
  Company Number: US-GLAXOSMITHKLINE-US2016148567

PATIENT
  Age: 73 Year
  Sex: Female

DRUGS (10)
  1. SINGULAIR [Concomitant]
     Active Substance: MONTELUKAST SODIUM
  2. TRAMADOL. [Concomitant]
     Active Substance: TRAMADOL
  3. ADVAIR DISKUS [Suspect]
     Active Substance: FLUTICASONE PROPIONATE\SALMETEROL XINAFOATE
     Indication: ASTHMA
     Dosage: 1 PUFF(S), BID
     Dates: start: 20161010
  4. ALLOPURINOL. [Concomitant]
     Active Substance: ALLOPURINOL
  5. DYAZIDE [Concomitant]
     Active Substance: HYDROCHLOROTHIAZIDE\TRIAMTERENE
  6. NAPROXEN. [Concomitant]
     Active Substance: NAPROXEN
  7. XOLAIR [Concomitant]
     Active Substance: OMALIZUMAB
     Route: 042
  8. ZANTAC [Concomitant]
     Active Substance: RANITIDINE HYDROCHLORIDE
  9. ZOCOR [Concomitant]
     Active Substance: SIMVASTATIN
  10. NEBULIZED ALBUTEROL [Concomitant]
     Active Substance: ALBUTEROL

REACTIONS (1)
  - Wheezing [Recovering/Resolving]

NARRATIVE: CASE EVENT DATE: 20161010
